FAERS Safety Report 4270640-1 (Version None)
Quarter: 2004Q1

REPORT INFORMATION
  Report Type: 
  Country: None (occurrence: None)
  Receive Date: 20040114
  Receipt Date: 20040105
  Transmission Date: 20041129
  Serious: Yes (Other)
  Sender: FDA-Public Use
  Company Number: PHFR2004GB00465

PATIENT
  Age: 67 Year
  Sex: Male

DRUGS (3)
  1. CARBAMAZEPINE [Suspect]
     Indication: TEMPORAL LOBE EPILEPSY
     Dosage: 200 MG, BID
     Route: 048
     Dates: start: 20020401, end: 20030601
  2. OLANZAPINE [Suspect]
     Indication: CONFUSIONAL STATE
     Dosage: 10 MG, QD
     Route: 048
     Dates: start: 20030313, end: 20030601
  3. ACETAMINOPHEN [Concomitant]
     Dosage: UNK, PRN
     Route: 048

REACTIONS (3)
  - BLOOD PRESSURE DECREASED [None]
  - CIRCULATORY COLLAPSE [None]
  - SYNCOPE [None]
